FAERS Safety Report 6345924-3 (Version None)
Quarter: 2009Q3

REPORT INFORMATION
  Report Type: 
  Country: None (occurrence: None)
  Receive Date: 20090909
  Receipt Date: 20090901
  Transmission Date: 20100115
  Serious: Yes (Other)
  Sender: FDA-Public Use
  Company Number: B0585909A

PATIENT
  Sex: Male
  Weight: 50 kg

DRUGS (3)
  1. LAMICTIN [Suspect]
     Indication: EPILEPSY
     Dosage: 150MG TWICE PER DAY
     Route: 048
     Dates: start: 20070104
  2. TRILEPTAL [Concomitant]
     Indication: EPILEPSY
     Dates: start: 20081024, end: 20090101
  3. RITALIN [Concomitant]

REACTIONS (1)
  - NIGHTMARE [None]
